FAERS Safety Report 13449763 (Version 1)
Quarter: 2017Q2

REPORT INFORMATION
  Report Type: Spontaneous
  Country: US (occurrence: US)
  Receive Date: 20170417
  Receipt Date: 20170417
  Transmission Date: 20170830
  Serious: No
  Sender: FDA-Public Use
  Company Number: US-BANPHARM-20164740

PATIENT
  Age: 82 Year

DRUGS (3)
  1. ALEVE [Suspect]
     Active Substance: NAPROXEN SODIUM
     Dosage: 1 DF, PRN,
     Route: 048
     Dates: start: 2015
  2. BAYER [Suspect]
     Active Substance: ASPIRIN
  3. LOPRESSOR [Concomitant]
     Active Substance: METOPROLOL TARTRATE

REACTIONS (3)
  - Therapeutic response unexpected [Unknown]
  - Drug effect delayed [Unknown]
  - Expired product administered [Unknown]

NARRATIVE: CASE EVENT DATE: 20160302
